FAERS Safety Report 16910394 (Version 1)
Quarter: 2019Q4

REPORT INFORMATION
  Report Type: Spontaneous
  Country: ES (occurrence: ES)
  Receive Date: 20191011
  Receipt Date: 20191011
  Transmission Date: 20200122
  Serious: Yes (Other)
  Sender: FDA-Public Use
  Company Number: ES-GLAXOSMITHKLINE-ES2019181337

PATIENT
  Age: 49 Year
  Sex: Female
  Weight: 85 kg

DRUGS (9)
  1. PARACETAMOL CINFA [Concomitant]
     Indication: HEADACHE
     Dosage: 1 PILL IF PAIN EVERY A / 8 HOURS
     Route: 048
     Dates: start: 1999
  2. LORMETAZEPAM NORMON [Concomitant]
     Active Substance: LORMETAZEPAM
     Indication: INSOMNIA
     Dosage: 1 TABLET AT BEDTIME
     Route: 048
     Dates: start: 20100308
  3. OVESTINON [Concomitant]
     Indication: VULVOVAGINAL DRYNESS
     Dosage: ONE WEEK DOSE
     Route: 067
     Dates: start: 20190914
  4. DIAZEPAN PRODES [Concomitant]
     Indication: ANXIETY
     Dosage: 1 PILL IN THE AFTERNOON AND ANOTHER PILL BEFORE BEDTIME
     Route: 048
     Dates: start: 200104
  5. IBUPROFEN. [Concomitant]
     Active Substance: IBUPROFEN
     Indication: PAIN
     Dosage: ENVELOPE WHEN PAIN EVERY 8 HOURS OR 1 ENVELOPE IF INFLAMMATION EVERY 12 HOURS; AS NECESSARY
     Route: 048
     Dates: start: 2014
  6. EVOPAD [Concomitant]
     Indication: HORMONE REPLACEMENT THERAPY
     Dosage: 1 PATCH EVERY 3 DAYS
     Route: 062
     Dates: start: 2017
  7. AVAMYS [Suspect]
     Active Substance: FLUTICASONE FUROATE
     Indication: RHINITIS ALLERGIC
     Dosage: TWO IN EACH NOSTRIL AT NIGHT
     Route: 045
     Dates: start: 20190916, end: 20190920
  8. AVAMYS [Suspect]
     Active Substance: FLUTICASONE FUROATE
     Dosage: UNK
  9. OMEPRAZOL NORMON [Concomitant]
     Indication: GASTROOESOPHAGEAL REFLUX DISEASE
     Dosage: 1 PILL A DAY
     Route: 048
     Dates: start: 20160430

REACTIONS (7)
  - Respiratory distress [Not Recovered/Not Resolved]
  - Headache [Not Recovered/Not Resolved]
  - Pharyngitis [Not Recovered/Not Resolved]
  - Glossitis [Not Recovered/Not Resolved]
  - Dizziness [Not Recovered/Not Resolved]
  - Disorientation [Not Recovered/Not Resolved]
  - Rash [Recovering/Resolving]

NARRATIVE: CASE EVENT DATE: 20190917
